FAERS Safety Report 12850500 (Version 3)
Quarter: 2017Q1

REPORT INFORMATION
  Report Type: Report from Study
  Country: BE (occurrence: BE)
  Receive Date: 20161014
  Receipt Date: 20170330
  Transmission Date: 20170428
  Serious: Yes (Hospitalization)
  Sender: FDA-Public Use
  Company Number: BE-EXELIXIS-XL18416007289

PATIENT
  Age: 71 Year
  Sex: Male
  Weight: 65 kg

DRUGS (13)
  1. ESCITALOPRAM [Concomitant]
     Active Substance: ESCITALOPRAM OXALATE
  2. ALPRAZOLAM. [Concomitant]
     Active Substance: ALPRAZOLAM
  3. ASAFLOW [Concomitant]
     Active Substance: ASPIRIN
  4. CORUNO [Concomitant]
     Active Substance: MOLSIDOMINE
  5. DIPROSONE [Concomitant]
     Active Substance: BETAMETHASONE DIPROPIONATE
  6. XL184 [Suspect]
     Active Substance: CABOZANTINIB
     Dosage: 20 MG, QD
     Route: 048
     Dates: start: 20161007, end: 20161010
  7. COVERAM [Concomitant]
     Active Substance: AMLODIPINE\PERINDOPRIL
  8. HYPERLIPEN [Concomitant]
  9. CREAM WITH UREA [Concomitant]
  10. XL184 [Suspect]
     Active Substance: CABOZANTINIB
     Dosage: 20 MG, QD
     Route: 048
     Dates: end: 20161005
  11. XL184 [Suspect]
     Active Substance: CABOZANTINIB
     Indication: HEPATOCELLULAR CARCINOMA
     Dosage: 60 MG, QD
     Route: 048
     Dates: start: 20160607
  12. METARELAX [Concomitant]
  13. D-CURE [Concomitant]

REACTIONS (1)
  - Acute myocardial infarction [Recovered/Resolved]

NARRATIVE: CASE EVENT DATE: 20161006
